FAERS Safety Report 8098326-6 (Version None)
Quarter: 2012Q1

REPORT INFORMATION
  Report Type: 
  Country: None (occurrence: None)
  Receive Date: 20120129
  Receipt Date: 20111001
  Transmission Date: 20120608
  Serious: No
  Sender: FDA-Public Use
  Company Number: US-ABBOTT-11P-163-0860259-00

PATIENT
  Age: 40 Year
  Sex: Female

DRUGS (6)
  1. CLINDOMYCIN [Concomitant]
     Indication: PRODUCT USED FOR UNKNOWN INDICATION
  2. HIBICLENS [Concomitant]
     Indication: PRODUCT USED FOR UNKNOWN INDICATION
  3. HUMIRA [Suspect]
     Indication: CROHN'S DISEASE
     Dates: start: 20110311
  4. LISINOPRIL [Concomitant]
     Indication: HYPERTENSION
  5. PRISTIQ [Concomitant]
     Indication: DEPRESSION
  6. SYNTHROID [Concomitant]
     Indication: HYPOTHYROIDISM
     Dosage: DAILY

REACTIONS (4)
  - ARTHRALGIA [None]
  - RECTAL ABSCESS [None]
  - ABSCESS [None]
  - MYALGIA [None]
